FAERS Safety Report 14406955 (Version 1)
Quarter: 2018Q1

REPORT INFORMATION
  Report Type: Spontaneous
  Country: US (occurrence: US)
  Receive Date: 20180116
  Receipt Date: 20180116
  Transmission Date: 20180509
  Serious: Yes (Death)
  Sender: FDA-Public Use
  Company Number: None

PATIENT

DRUGS (16)
  1. LATANOPROST. [Concomitant]
     Active Substance: LATANOPROST
  2. ASPIRIN. [Concomitant]
     Active Substance: ASPIRIN
  3. DORZOLAMIDE [Concomitant]
     Active Substance: DORZOLAMIDE
  4. COMBIGAN [Concomitant]
     Active Substance: BRIMONIDINE TARTRATE\TIMOLOL MALEATE
  5. CARB/LEVE [Concomitant]
  6. CEFDINIR. [Concomitant]
     Active Substance: CEFDINIR
  7. DONEPEZIL. [Concomitant]
     Active Substance: DONEPEZIL
  8. LEVOTHYROXIN [Concomitant]
     Active Substance: LEVOTHYROXINE
  9. ESOMEPRA MAG [Concomitant]
  10. IPRATROPIUM [Concomitant]
     Active Substance: IPRATROPIUM
  11. QUETIAPINE. [Concomitant]
     Active Substance: QUETIAPINE
  12. NUPLAZID [Suspect]
     Active Substance: PIMAVANSERIN TARTRATE
     Indication: PARKINSON^S DISEASE
     Route: 048
     Dates: start: 20170411, end: 201801
  13. AZITHROMYCIN ANHYDROUS. [Concomitant]
     Active Substance: AZITHROMYCIN ANHYDROUS
  14. DIVALPROEX [Concomitant]
     Active Substance: DIVALPROEX SODIUM
  15. NEUPRO [Concomitant]
     Active Substance: ROTIGOTINE
  16. LEVOFLOXACIN. [Concomitant]
     Active Substance: LEVOFLOXACIN

REACTIONS (1)
  - Death [None]
